FAERS Safety Report 6100645-7 (Version None)
Quarter: 2009Q1

REPORT INFORMATION
  Report Type: 
  Country: None (occurrence: None)
  Receive Date: 20090303
  Receipt Date: 20090219
  Transmission Date: 20090719
  Serious: Yes (Life-Threatening, Hospitalization, Disabling)
  Sender: FDA-Public Use
  Company Number: JP-PFIZER INC-2008062199

PATIENT

DRUGS (7)
  1. AZULFIDINE [Suspect]
     Dosage: 500 MG, 1X/DAY
     Route: 048
     Dates: start: 20080305, end: 20080604
  2. LOXONIN [Suspect]
     Indication: RHEUMATOID ARTHRITIS
     Dosage: 60 MG, 3X/DAY
     Route: 048
     Dates: start: 20080227, end: 20080604
  3. MUCOSTA [Suspect]
     Dosage: UNK
     Route: 048
     Dates: start: 20080227, end: 20080604
  4. ADOFEED [Concomitant]
     Route: 062
  5. ADALAT [Concomitant]
     Route: 048
  6. NU LOTAN [Concomitant]
     Route: 048
  7. ALL OTHER THERAPEUTIC PRODUCTS [Concomitant]

REACTIONS (2)
  - LARGE GRANULAR LYMPHOCYTOSIS [None]
  - THROMBOCYTOPENIA [None]
